FAERS Safety Report 23710151 (Version 2)
Quarter: 2024Q2

REPORT INFORMATION
  Report Type: Report from Study
  Country: CO (occurrence: CO)
  Receive Date: 20240405
  Receipt Date: 20240426
  Transmission Date: 20240715
  Serious: Yes (Death, Hospitalization, Other)
  Sender: FDA-Public Use
  Company Number: CO-ABBVIE-5705754

PATIENT
  Age: 81 Year
  Sex: Female
  Weight: 53 kg

DRUGS (2)
  1. VENCLEXTA [Suspect]
     Active Substance: VENETOCLAX
     Indication: Acute myeloid leukaemia
     Dosage: 200 MILLIGRAM?FORM STRENGTH: 100 MILLIGRAM
     Route: 048
     Dates: start: 20230419, end: 20240330
  2. VENCLEXTA [Suspect]
     Active Substance: VENETOCLAX
     Indication: Acute myeloid leukaemia
     Dosage: 200 MILLIGRAM?FORM STRENGTH: 100 MILLIGRAM
     Route: 048
     Dates: start: 20230419, end: 20240330

REACTIONS (5)
  - Acute myeloid leukaemia [Fatal]
  - Pain [Not Recovered/Not Resolved]
  - Oropharyngeal plaque [Recovering/Resolving]
  - Dyspnoea [Recovering/Resolving]
  - Back pain [Not Recovered/Not Resolved]

NARRATIVE: CASE EVENT DATE: 20240328
